FAERS Safety Report 18991632 (Version 1)
Quarter: 2021Q1

REPORT INFORMATION
  Report Type: Spontaneous
  Country: US (occurrence: US)
  Receive Date: 20210309
  Receipt Date: 20210309
  Transmission Date: 20210420
  Serious: Yes (Other)
  Sender: FDA-Public Use
  Company Number: None

PATIENT
  Age: 83 Year
  Sex: Male
  Weight: 70.31 kg

DRUGS (19)
  1. FUROSEMIDE. [Concomitant]
     Active Substance: FUROSEMIDE
  2. AMIODARONE [Concomitant]
     Active Substance: AMIODARONE
  3. AMIODRONE [Concomitant]
  4. VIT B [Concomitant]
     Active Substance: VITAMIN B
  5. PACE MAKER [Concomitant]
  6. OMEGA 3 [Concomitant]
     Active Substance: OMEGA-3 FATTY ACIDS
  7. MULTI VIT [Concomitant]
     Active Substance: VITAMINS
  8. MAGNESIUM [Concomitant]
     Active Substance: MAGNESIUM
  9. PANTOPRAZOLE [Concomitant]
     Active Substance: PANTOPRAZOLE
  10. ELIQUIS [Concomitant]
     Active Substance: APIXABAN
  11. AMIODARONE 200MG TABLETS [Suspect]
     Active Substance: AMIODARONE
     Indication: ATRIAL FIBRILLATION
     Dosage: ?          QUANTITY:1 PER DAY NOW;?
     Route: 048
     Dates: start: 20201205
  12. DEFIBULAOR [Concomitant]
  13. LEVOTHYROXINE. [Concomitant]
     Active Substance: LEVOTHYROXINE
  14. SPIRONOLACTONE. [Concomitant]
     Active Substance: SPIRONOLACTONE
  15. FINASTERIDE. [Concomitant]
     Active Substance: FINASTERIDE
  16. BABY ASPRIN [Concomitant]
     Active Substance: ASPIRIN
  17. EZETIMIBE. [Concomitant]
     Active Substance: EZETIMIBE
  18. METOPROLOL. [Concomitant]
     Active Substance: METOPROLOL
  19. OPPUM [Concomitant]

REACTIONS (2)
  - Weight decreased [None]
  - Product taste abnormal [None]

NARRATIVE: CASE EVENT DATE: 20201212
